FAERS Safety Report 21123516 (Version 1)
Quarter: 2022Q3

REPORT INFORMATION
  Report Type: Spontaneous
  Country: US (occurrence: US)
  Receive Date: 20220724
  Receipt Date: 20220724
  Transmission Date: 20221026
  Serious: No
  Sender: FDA-Public Use
  Company Number: US-CELGENE-USA-20200905069

PATIENT
  Age: 75 Year
  Sex: Female
  Weight: 67 kg

DRUGS (1)
  1. REVLIMID [Suspect]
     Active Substance: LENALIDOMIDE
     Indication: Diffuse large B-cell lymphoma
     Dosage: FREQ: OD, 21 OUT OF 28 DAY CYCLE
     Route: 048
     Dates: start: 20200107

REACTIONS (3)
  - Dermatitis contact [Not Recovered/Not Resolved]
  - Impaired healing [Not Recovered/Not Resolved]
  - Intentional product use issue [Unknown]
